FAERS Safety Report 20031945 (Version 6)
Quarter: 2022Q3

REPORT INFORMATION
  Report Type: Report from Study
  Country: JP (occurrence: JP)
  Receive Date: 20211103
  Receipt Date: 20220703
  Transmission Date: 20221027
  Serious: No
  Sender: FDA-Public Use
  Company Number: JP-ABBVIE-21K-087-4141792-00

PATIENT
  Age: 47 Year
  Sex: Male

DRUGS (12)
  1. SKYRIZI [Suspect]
     Active Substance: RISANKIZUMAB-RZAA
     Indication: Psoriasis
     Route: 058
     Dates: start: 20210701, end: 20210728
  2. SKYRIZI [Suspect]
     Active Substance: RISANKIZUMAB-RZAA
     Route: 058
     Dates: start: 20210728
  3. CEFCAPENE PIVOXIL HYDROCHLORIDE HYDRATE [Suspect]
     Active Substance: CEFCAPENE PIVOXIL HYDROCHLORIDE HYDRATE
     Indication: Product used for unknown indication
     Route: 065
  4. FURSULTIAMINE HYDROCHLORIDE [Suspect]
     Active Substance: FURSULTIAMINE HYDROCHLORIDE
     Indication: Product used for unknown indication
     Route: 065
  5. TRANEXAMIC ACID [Suspect]
     Active Substance: TRANEXAMIC ACID
     Indication: Product used for unknown indication
     Route: 065
  6. RUPATADINE FUMARATE [Concomitant]
     Active Substance: RUPATADINE FUMARATE
     Indication: Psoriasis
     Route: 048
     Dates: start: 20190508
  7. POLAPREZINC [Concomitant]
     Active Substance: POLAPREZINC
     Indication: Gastritis
     Route: 048
     Dates: start: 20190313, end: 20190313
  8. POLAPREZINC [Concomitant]
     Active Substance: POLAPREZINC
     Route: 048
     Dates: start: 20190313
  9. MAXACALCITOL [Concomitant]
     Active Substance: MAXACALCITOL
     Indication: Psoriasis
     Route: 061
     Dates: start: 20170201
  10. DEXAMETHASONE DIPROPIONATE [Concomitant]
     Active Substance: DEXAMETHASONE DIPROPIONATE
     Indication: Psoriasis
     Route: 061
     Dates: start: 20170201
  11. VITAMIN A [Concomitant]
     Active Substance: VITAMIN A
     Indication: Psoriasis
     Route: 061
     Dates: start: 20170201
  12. DEXAMETHASONE VALERATE [Concomitant]
     Active Substance: DEXAMETHASONE VALERATE
     Indication: Psoriasis
     Route: 061
     Dates: start: 20190605

REACTIONS (7)
  - Hepatic function abnormal [Recovered/Resolved]
  - Hepatic steatosis [Recovered/Resolved]
  - Prostatomegaly [Recovered/Resolved]
  - Haemangioma of liver [Recovered/Resolved]
  - Nasopharyngitis [Recovered/Resolved]
  - Nasopharyngitis [Recovered/Resolved]
  - Hand fracture [Not Recovered/Not Resolved]

NARRATIVE: CASE EVENT DATE: 20210905
